FAERS Safety Report 19925034 (Version 2)
Quarter: 2022Q2

REPORT INFORMATION
  Report Type: Spontaneous
  Country: US (occurrence: None)
  Receive Date: 20211006
  Receipt Date: 20220426
  Transmission Date: 20220720
  Serious: Yes (Death, Other)
  Sender: FDA-Public Use
  Company Number: 2021A757811

PATIENT
  Age: 26078 Day
  Sex: Male

DRUGS (79)
  1. NEXIUM [Suspect]
     Active Substance: ESOMEPRAZOLE MAGNESIUM
     Indication: Gastrooesophageal reflux disease
     Route: 048
     Dates: start: 2003, end: 2019
  2. NEXIUM [Suspect]
     Active Substance: ESOMEPRAZOLE MAGNESIUM
     Indication: Gastrooesophageal reflux disease
     Route: 048
     Dates: start: 2003, end: 2019
  3. NEXIUM 24HR [Suspect]
     Active Substance: ESOMEPRAZOLE MAGNESIUM
     Indication: Gastrooesophageal reflux disease
     Route: 048
     Dates: start: 2003, end: 2019
  4. NEXIUM 24HR [Suspect]
     Active Substance: ESOMEPRAZOLE MAGNESIUM
     Indication: Gastrooesophageal reflux disease
     Route: 048
     Dates: start: 2003, end: 2019
  5. NEXIUM 24HR [Suspect]
     Active Substance: ESOMEPRAZOLE MAGNESIUM
     Indication: Gastrooesophageal reflux disease
     Route: 048
     Dates: start: 2014, end: 2019
  6. NEXIUM 24HR [Suspect]
     Active Substance: ESOMEPRAZOLE MAGNESIUM
     Indication: Gastrooesophageal reflux disease
     Route: 048
     Dates: start: 2014, end: 2019
  7. PRILOSEC [Suspect]
     Active Substance: OMEPRAZOLE MAGNESIUM
     Indication: Gastrooesophageal reflux disease
     Route: 048
     Dates: start: 2003, end: 2019
  8. PRILOSEC [Suspect]
     Active Substance: OMEPRAZOLE MAGNESIUM
     Indication: Gastrooesophageal reflux disease
     Route: 048
     Dates: start: 2003, end: 2019
  9. PRILOSEC [Suspect]
     Active Substance: OMEPRAZOLE MAGNESIUM
     Indication: Gastrooesophageal reflux disease
     Dosage: GENERIC
     Route: 065
     Dates: start: 2015, end: 2019
  10. PRILOSEC [Suspect]
     Active Substance: OMEPRAZOLE MAGNESIUM
     Indication: Gastrooesophageal reflux disease
     Dosage: GENERIC
     Route: 065
     Dates: start: 2015, end: 2019
  11. PRILOSEC OTC [Suspect]
     Active Substance: OMEPRAZOLE MAGNESIUM
     Indication: Gastrooesophageal reflux disease
     Route: 048
     Dates: start: 2003, end: 2019
  12. PRILOSEC OTC [Suspect]
     Active Substance: OMEPRAZOLE MAGNESIUM
     Indication: Gastrooesophageal reflux disease
     Route: 048
     Dates: start: 2003, end: 2019
  13. PROTONIX [Suspect]
     Active Substance: PANTOPRAZOLE SODIUM
     Indication: Gastrooesophageal reflux disease
     Route: 065
     Dates: start: 2014, end: 2019
  14. PROTONIX [Suspect]
     Active Substance: PANTOPRAZOLE SODIUM
     Indication: Gastrooesophageal reflux disease
     Route: 065
     Dates: start: 2014, end: 2019
  15. PROTONIX [Suspect]
     Active Substance: PANTOPRAZOLE SODIUM
     Indication: Gastrooesophageal reflux disease
     Dosage: GENERIC
     Route: 065
     Dates: start: 2017, end: 2019
  16. PROTONIX [Suspect]
     Active Substance: PANTOPRAZOLE SODIUM
     Indication: Gastrooesophageal reflux disease
     Dosage: GENERIC
     Route: 065
     Dates: start: 2017, end: 2019
  17. ASPIRIN [Concomitant]
     Active Substance: ASPIRIN
  18. DUONEB [Concomitant]
     Active Substance: ALBUTEROL SULFATE\IPRATROPIUM BROMIDE
  19. POTASSIUM CHLORIDE [Concomitant]
     Active Substance: POTASSIUM CHLORIDE
  20. SODIUM CHLORIDE [Concomitant]
     Active Substance: SODIUM CHLORIDE
  21. DEXTROSE [Concomitant]
     Active Substance: DEXTROSE
  22. GLUCAGON [Concomitant]
     Active Substance: GLUCAGON
  23. LANTUS SOLOSTAR [Concomitant]
     Active Substance: INSULIN GLARGINE
  24. CODEINE [Concomitant]
     Active Substance: CODEINE
  25. LACTATED RINGERS SOLUTION [Concomitant]
     Active Substance: CALCIUM CHLORIDE\POTASSIUM CHLORIDE\SODIUM CHLORIDE\SODIUM LACTATE
  26. BARIUM SULFATE [Concomitant]
     Active Substance: BARIUM SULFATE
  27. FENTANYL [Concomitant]
     Active Substance: FENTANYL
  28. LIDOCAINE [Concomitant]
     Active Substance: LIDOCAINE
  29. PROPOFOL [Concomitant]
     Active Substance: PROPOFOL
  30. ATORVASTATIN CALCIUM [Concomitant]
     Active Substance: ATORVASTATIN CALCIUM
  31. LUMIGAN [Concomitant]
     Active Substance: BIMATOPROST
  32. ACETAMINOPHEN [Concomitant]
     Active Substance: ACETAMINOPHEN
  33. HEPARIN [Concomitant]
     Active Substance: HEPARIN SODIUM
  34. DOCUSATE SODIUM [Concomitant]
     Active Substance: DOCUSATE SODIUM
  35. TRADJENTA [Concomitant]
     Active Substance: LINAGLIPTIN
  36. SINGULAIR [Concomitant]
     Active Substance: MONTELUKAST SODIUM
  37. GLUCOSAMINE [Concomitant]
     Active Substance: GLUCOSAMINE
  38. CHONDROITIN [Concomitant]
     Active Substance: CHONDROITIN
  39. COZAAR [Concomitant]
     Active Substance: LOSARTAN POTASSIUM
  40. LEVOCETIRIZINE [Concomitant]
     Active Substance: LEVOCETIRIZINE
  41. ERYTHROPOIETIN [Concomitant]
     Active Substance: ERYTHROPOIETIN
  42. ZOFRAN [Concomitant]
     Active Substance: ONDANSETRON HYDROCHLORIDE
  43. LATANOPROST [Concomitant]
     Active Substance: LATANOPROST
  44. ROBITUSSIN (GUAIFENESIN) [Concomitant]
     Active Substance: GUAIFENESIN
  45. PROVENTIL [Concomitant]
     Active Substance: ALBUTEROL
  46. TESSALON [Concomitant]
     Active Substance: BENZONATATE
  47. GABAPENTIN [Concomitant]
     Active Substance: GABAPENTIN
  48. ACETAMINOPHEN\HYDROCODONE BITARTRATE [Concomitant]
     Active Substance: ACETAMINOPHEN\HYDROCODONE BITARTRATE
  49. MELATONIN [Concomitant]
     Active Substance: MELATONIN
  50. JANUVIA [Concomitant]
     Active Substance: SITAGLIPTIN PHOSPHATE
  51. HYDROCODONE-HOMATROPINE [Concomitant]
  52. PERFLUTREN [Concomitant]
     Active Substance: PERFLUTREN
  53. LASIX [Concomitant]
     Active Substance: FUROSEMIDE
  54. BACITRACIN [Concomitant]
     Active Substance: BACITRACIN
  55. BYDUREON [Concomitant]
     Active Substance: EXENATIDE
  56. PROMETHAZINE [Concomitant]
     Active Substance: PROMETHAZINE HYDROCHLORIDE
  57. PREDNISONE [Concomitant]
     Active Substance: PREDNISONE
  58. BYSTOLIC [Concomitant]
     Active Substance: NEBIVOLOL HYDROCHLORIDE
  59. METHYLPREDNISOLONE [Concomitant]
     Active Substance: METHYLPREDNISOLONE
  60. NABUMETONE [Concomitant]
     Active Substance: NABUMETONE
  61. ZOSTAVAX [Concomitant]
     Active Substance: VARICELLA-ZOSTER VIRUS STRAIN OKA/MERCK LIVE ANTIGEN
  62. FISH OIL [Concomitant]
     Active Substance: FISH OIL
  63. VITAMINS [Concomitant]
     Active Substance: VITAMINS
  64. RANITIDINE [Concomitant]
     Active Substance: RANITIDINE
  65. VANCOMYCIN [Concomitant]
     Active Substance: VANCOMYCIN
  66. ZOSYN [Concomitant]
     Active Substance: PIPERACILLIN SODIUM\TAZOBACTAM SODIUM
  67. CIPROFLOXACIN [Concomitant]
     Active Substance: CIPROFLOXACIN
  68. MIRALAX [Concomitant]
     Active Substance: POLYETHYLENE GLYCOL 3350
  69. ALBUMIN HUMAN [Concomitant]
     Active Substance: ALBUMIN HUMAN
  70. PULMICORT TURBUHALER [Concomitant]
     Active Substance: BUDESONIDE
  71. DOXYCYCLINE HYCLATE [Concomitant]
     Active Substance: DOXYCYCLINE HYCLATE
  72. LACTOBACILLUS BULGARICUS/MAGNESIUM CITRATE/XYLANASE/UBIDECARENONE/HEMI [Concomitant]
  73. ZOMETA [Concomitant]
     Active Substance: ZOLEDRONIC ACID
  74. DELSYM [Concomitant]
     Active Substance: DEXTROMETHORPHAN
  75. INDOMETHACIN [Concomitant]
     Active Substance: INDOMETHACIN
  76. MINOCYCLINE [Concomitant]
     Active Substance: MINOCYCLINE HYDROCHLORIDE
  77. MANNITOL [Concomitant]
     Active Substance: MANNITOL
  78. ROLAIDS [Concomitant]
     Active Substance: CALCIUM CARBONATE\MAGNESIUM HYDROXIDE
  79. TUMS [Concomitant]
     Active Substance: CALCIUM CARBONATE

REACTIONS (6)
  - Cerebrovascular accident [Fatal]
  - Coagulopathy [Fatal]
  - Pancreatic carcinoma metastatic [Fatal]
  - Chronic kidney disease [Unknown]
  - Acute kidney injury [Unknown]
  - Renal failure [Unknown]

NARRATIVE: CASE EVENT DATE: 20191009
